FAERS Safety Report 10026875 (Version 1)
Quarter: 2014Q1

REPORT INFORMATION
  Report Type: Spontaneous
  Country: CZ (occurrence: CZ)
  Receive Date: 20140321
  Receipt Date: 20140321
  Transmission Date: 20141002
  Serious: Yes (Other)
  Sender: FDA-Public Use
  Company Number: CZ-BAYER-2014-040506

PATIENT
  Sex: 0
  Weight: .58 kg

DRUGS (5)
  1. ACETYLSALICYLIC ACID({=100 MG) [Suspect]
     Dosage: UNK
     Route: 064
  2. HEPARIN [Concomitant]
     Route: 064
  3. BETAMETHASONE [BETAMETHASONE] [Concomitant]
     Indication: FOETAL DISORDER
     Route: 064
  4. AZATHIOPRINE [Concomitant]
  5. HYDROXYCHLOROQUINE [Concomitant]

REACTIONS (23)
  - Neonatal respiratory distress syndrome [None]
  - Premature delivery [None]
  - Neonatal cholestasis [None]
  - Necrotising colitis [None]
  - Glucocorticoid deficiency [None]
  - Low birth weight baby [None]
  - Leukopenia [None]
  - Thrombocytopenia [Recovered/Resolved]
  - Bronchopulmonary dysplasia [None]
  - Gastrointestinal disorder [None]
  - Feeding disorder [Recovered/Resolved]
  - Bone disorder [None]
  - Pathological fracture [None]
  - Disability [None]
  - Mental disorder [None]
  - Neuromyopathy [None]
  - Speech disorder developmental [None]
  - Psychomotor retardation [None]
  - Hypothyroidism [None]
  - Inguinal hernia [None]
  - C-reactive protein increased [None]
  - Hypertonia [None]
  - Psychomotor hyperactivity [None]
